FAERS Safety Report 8942707 (Version 2)
Quarter: 2012Q4

REPORT INFORMATION
  Report Type: 
  Country: FR (occurrence: FR)
  Receive Date: 20121204
  Receipt Date: 20121227
  Transmission Date: 20130627
  Serious: Yes (Other)
  Sender: FDA-Public Use
  Company Number: FR-JNJFOC-20121200620

PATIENT

DRUGS (6)
  1. ETRAVIRINE [Suspect]
     Indication: PATHOGEN RESISTANCE
     Route: 065
  2. DARUNAVIR [Suspect]
     Indication: PATHOGEN RESISTANCE
     Route: 065
  3. NUCLEOSIDE [Suspect]
     Indication: PATHOGEN RESISTANCE
     Route: 065
  4. ENFUVIRTIDE [Suspect]
     Indication: PATHOGEN RESISTANCE
     Route: 065
  5. RALTEGRAVIR [Suspect]
     Indication: PATHOGEN RESISTANCE
     Route: 065
  6. RITONAVIR [Suspect]
     Indication: PATHOGEN RESISTANCE
     Route: 065

REACTIONS (1)
  - Adverse drug reaction [Unknown]
